FAERS Safety Report 22062782 (Version 2)
Quarter: 2023Q1

REPORT INFORMATION
  Report Type: Other
  Country: DE (occurrence: None)
  Receive Date: 20230306
  Receipt Date: 20230307
  Transmission Date: 20230417
  Serious: No
  Sender: FDA-Public Use
  Company Number: DE-ROCHE-3298133

PATIENT
  Age: 32 Year
  Sex: Female
  Weight: 104 kg

DRUGS (5)
  1. OCRELIZUMAB [Suspect]
     Active Substance: OCRELIZUMAB
     Indication: Relapsing multiple sclerosis
     Route: 042
     Dates: start: 20180604, end: 20180618
  2. OCRELIZUMAB [Suspect]
     Active Substance: OCRELIZUMAB
     Dosage: MOST RECENT DOSE PRIOR TO AE 04/JUN/2019
     Route: 042
     Dates: start: 20181210
  3. DIMETHYL FUMARATE [Suspect]
     Active Substance: DIMETHYL FUMARATE
     Indication: Relapsing multiple sclerosis
     Dosage: MOST RECENT DOSE: 15/JAN/2021
     Route: 048
     Dates: start: 20200610
  4. METHYLPREDNISOLONE [Concomitant]
     Active Substance: METHYLPREDNISOLONE
     Indication: Multiple sclerosis relapse
     Route: 042
     Dates: start: 20190920, end: 20190923
  5. MAXIM (GERMANY) [Concomitant]
     Indication: Contraception
     Route: 048
     Dates: start: 201805

REACTIONS (3)
  - Haemorrhoids [Recovered/Resolved]
  - COVID-19 [Recovered/Resolved]
  - Sinus tachycardia [Not Recovered/Not Resolved]

NARRATIVE: CASE EVENT DATE: 20220201
